FAERS Safety Report 7782905-7 (Version None)
Quarter: 2011Q3

REPORT INFORMATION
  Report Type: 
  Country: None (occurrence: None)
  Receive Date: 20110928
  Receipt Date: 20110915
  Transmission Date: 20111222
  Serious: Yes (Other)
  Sender: FDA-Public Use
  Company Number: ES-ELI_LILLY_AND_COMPANY-ES201108007836

PATIENT
  Sex: Female
  Weight: 80 kg

DRUGS (12)
  1. OMACOR [Concomitant]
     Indication: BLOOD CHOLESTEROL ABNORMAL
     Dosage: 1 DF, QD
  2. MAGNESIUM HYDROXIDE TAB [Concomitant]
     Indication: CONSTIPATION
     Dosage: UNK, PRN
  3. FORTEO [Suspect]
     Indication: OSTEOPOROSIS
     Dosage: 20 UG, QD
     Route: 058
     Dates: start: 20091101
  4. DOGMATIL [Concomitant]
     Dosage: 1 DF, QD
  5. NOLOTIL [Concomitant]
     Indication: BONE PAIN
     Dosage: 2 DF, QD
  6. NEXIUM [Concomitant]
     Indication: GASTROINTESTINAL DISORDER
     Dosage: 2 DF, QD
  7. CONDROSULF [Concomitant]
     Indication: BONE DISORDER
     Dosage: 2 DF, QD
  8. EZETIMIBE [Concomitant]
     Indication: CARDIAC DISORDER
     Dosage: 1 DF, QD
  9. DISNAL [Concomitant]
     Indication: BONE DISORDER
     Dosage: 1 DF, QD
  10. LAXATIVES [Concomitant]
     Indication: CONSTIPATION
     Dosage: UNK, PRN
  11. SEDOTIME [Concomitant]
     Indication: SLEEP DISORDER
     Dosage: 1 DF, QD
  12. TRIFLUSAL [Concomitant]
     Dosage: 1 DF, QD

REACTIONS (2)
  - WEIGHT INCREASED [None]
  - FLUID RETENTION [None]
